FAERS Safety Report 7333973-8 (Version None)
Quarter: 2011Q1

REPORT INFORMATION
  Report Type: 
  Country: None (occurrence: None)
  Receive Date: 20110301
  Receipt Date: 20110301
  Transmission Date: 20110831
  Serious: Yes (Disabling)
  Sender: FDA-Public Use
  Company Number: None

PATIENT
  Sex: Female
  Weight: 74.8435 kg

DRUGS (1)
  1. DEPO-MEDROL [Suspect]
     Dosage: INTRATHECAL
     Route: 037

REACTIONS (1)
  - OSTEONECROSIS [None]
